FAERS Safety Report 23141568 (Version 1)
Quarter: 2023Q4

REPORT INFORMATION
  Report Type: Spontaneous
  Country: CZ (occurrence: CZ)
  Receive Date: 20231103
  Receipt Date: 20231103
  Transmission Date: 20240109
  Serious: Yes (Other)
  Sender: FDA-Public Use
  Company Number: CZ-BRISTOL-MYERS SQUIBB COMPANY-2023-156274

PATIENT
  Age: 46 Year
  Sex: Female

DRUGS (8)
  1. NIVOLUMAB [Suspect]
     Active Substance: NIVOLUMAB
     Indication: Lung adenocarcinoma
     Dosage: S
     Dates: start: 2022
  2. NIVOLUMAB [Suspect]
     Active Substance: NIVOLUMAB
     Dosage: CONTINUED ON MONOTHERAPY
     Dates: start: 202303
  3. IPILIMUMAB [Suspect]
     Active Substance: IPILIMUMAB
     Indication: Lung adenocarcinoma
     Dates: start: 2022
  4. FOLIC ACID [Concomitant]
     Active Substance: FOLIC ACID
     Indication: Product used for unknown indication
     Dates: start: 2022
  5. PEMETREXED [Concomitant]
     Active Substance: PEMETREXED
     Indication: Lung adenocarcinoma
     Dates: start: 2022
  6. VITAMIN B12 [Concomitant]
     Active Substance: CYANOCOBALAMIN
     Indication: Product used for unknown indication
  7. DIAZEPAM [Concomitant]
     Active Substance: DIAZEPAM
     Indication: Premedication
     Dates: start: 2022
  8. BISULEPIN [Concomitant]
     Active Substance: BISULEPIN
     Indication: Premedication
     Dates: start: 2022

REACTIONS (7)
  - Blood thyroid stimulating hormone increased [Recovering/Resolving]
  - Anxiety [Unknown]
  - Decreased appetite [Unknown]
  - Fatigue [Unknown]
  - Syncope [Unknown]
  - Blood uric acid increased [Unknown]
  - Hypothyroidism [Unknown]

NARRATIVE: CASE EVENT DATE: 20220101
